FAERS Safety Report 17772379 (Version 4)
Quarter: 2020Q4

REPORT INFORMATION
  Report Type: Spontaneous
  Country: US (occurrence: US)
  Receive Date: 20200512
  Receipt Date: 20201029
  Transmission Date: 20210113
  Serious: Yes (Other)
  Sender: FDA-Public Use
  Company Number: US-AMGEN-USASP2020073648

PATIENT
  Age: 81 Year
  Sex: Female
  Weight: 49.16 kg

DRUGS (3)
  1. CALCIUM [Concomitant]
     Active Substance: CALCIUM
     Dosage: UNK
  2. PROLIA [Suspect]
     Active Substance: DENOSUMAB
     Indication: OSTEOPOROSIS
     Dosage: 60 MILLIGRAM, Q6MO
     Route: 058
  3. VITAMIN D [COLECALCIFEROL] [Concomitant]
     Active Substance: CHOLECALCIFEROL
     Dosage: UNK

REACTIONS (5)
  - Spinal compression fracture [Not Recovered/Not Resolved]
  - Blood urea increased [Unknown]
  - Glomerular filtration rate abnormal [Unknown]
  - Muscle spasms [Recovered/Resolved]
  - Traumatic fracture [Unknown]

NARRATIVE: CASE EVENT DATE: 2019
